FAERS Safety Report 4471396-X (Version None)
Quarter: 2004Q4

REPORT INFORMATION
  Report Type: 
  Country: None (occurrence: None)
  Receive Date: 20041012
  Receipt Date: 20040930
  Transmission Date: 20050328
  Serious: Yes (Death)
  Sender: FDA-Public Use
  Company Number: JP-JNJFOC-20040705691

PATIENT
  Sex: Male

DRUGS (5)
  1. LEUSTATIN [Suspect]
  2. LOXOPROFEN [Concomitant]
     Indication: PAIN
  3. TEPRENONE [Concomitant]
     Indication: GASTRITIS
  4. BROMHEXINE [Concomitant]
     Indication: ASTHMA
  5. SERRAPEPTASE [Concomitant]
     Indication: ASTHMA

REACTIONS (6)
  - ANAEMIA [None]
  - CARDIO-RESPIRATORY ARREST [None]
  - CELLULITIS [None]
  - STAPHYLOCOCCAL SEPSIS [None]
  - THROMBOCYTOPENIA [None]
  - TONIC CONVULSION [None]
